FAERS Safety Report 4566318-7 (Version None)
Quarter: 2005Q1

REPORT INFORMATION
  Report Type: 
  Country: None (occurrence: None)
  Receive Date: 20050128
  Receipt Date: 20050121
  Transmission Date: 20050727
  Serious: Yes (Life-Threatening, Hospitalization, Disabling, Other)
  Sender: FDA-Public Use
  Company Number: 805#1#2005-00001

PATIENT
  Age: 1 Day
  Sex: Female

DRUGS (3)
  1. ALPROSTADIL [Suspect]
     Indication: HEART DISEASE CONGENITAL
     Dosage: SEE IMAGE
     Dates: start: 20050103, end: 20050103
  2. VECURONIUM BROMIDE [Concomitant]
  3. MIDAZOLAM HCL [Concomitant]

REACTIONS (1)
  - APNOEIC ATTACK [None]
